FAERS Safety Report 19733434 (Version 1)
Quarter: 2021Q3

REPORT INFORMATION
  Report Type: Spontaneous
  Country: ES (occurrence: ES)
  Receive Date: 20210823
  Receipt Date: 20210823
  Transmission Date: 20211014
  Serious: Yes (Other)
  Sender: FDA-Public Use
  Company Number: ES-LUPIN PHARMACEUTICALS INC.-2021-15420

PATIENT
  Age: 57 Year
  Sex: Female

DRUGS (2)
  1. USTEKINUMAB [Concomitant]
     Active Substance: USTEKINUMAB
     Indication: MEGACOLON
     Dosage: 6 MILLIGRAM/KILOGRAM(RECEIVED 2 INFUSIONS)
     Route: 065
  2. METHYLPREDNISOLONE. [Suspect]
     Active Substance: METHYLPREDNISOLONE
     Indication: CROHN^S DISEASE
     Dosage: 1 MILLIGRAM/KILOGRAM
     Route: 042
     Dates: start: 201912

REACTIONS (1)
  - Therapy non-responder [Unknown]
